FAERS Safety Report 25386009 (Version 1)
Quarter: 2025Q2

REPORT INFORMATION
  Report Type: Spontaneous
  Country: US (occurrence: None)
  Receive Date: 20250531
  Receipt Date: 20250531
  Transmission Date: 20250716
  Serious: Yes (Other)
  Sender: FDA-CTU
  Company Number: None

PATIENT
  Age: 81 Year
  Sex: Female
  Weight: 70.2 kg

DRUGS (10)
  1. RECLAST [Suspect]
     Active Substance: ZOLEDRONIC ACID
     Indication: Osteoporosis
     Dates: start: 20250322
  2. PAXLOVID [Suspect]
     Active Substance: NIRMATRELVIR\RITONAVIR
  3. ROSUVASTATIN [Suspect]
     Active Substance: ROSUVASTATIN
  4. , calcium [Concomitant]
  5. VITAMIN D [Concomitant]
     Active Substance: VITAMIN D NOS
  6. VITAMIN B12 [Concomitant]
     Active Substance: CYANOCOBALAMIN
  7. Super DHA [Concomitant]
  8. OXYGEN [Concomitant]
     Active Substance: OXYGEN
  9. UNSPECIFIED INGREDIENT [Concomitant]
     Active Substance: UNSPECIFIED INGREDIENT
  10. TYLENOL [Concomitant]
     Active Substance: ACETAMINOPHEN

REACTIONS (13)
  - Myalgia [None]
  - Muscle swelling [None]
  - Muscle disorder [None]
  - Arthropathy [None]
  - Blood pressure increased [None]
  - Joint lock [None]
  - Mastication disorder [None]
  - Dyskinesia [None]
  - Inflammation [None]
  - Fatigue [None]
  - Asthenia [None]
  - Arthralgia [None]
  - Infusion related reaction [None]

NARRATIVE: CASE EVENT DATE: 20250322
